FAERS Safety Report 14015927 (Version 9)
Quarter: 2020Q1

REPORT INFORMATION
  Report Type: Report from Study
  Country: US (occurrence: US)
  Receive Date: 20170927
  Receipt Date: 20200110
  Transmission Date: 20200409
  Serious: Yes (Other)
  Sender: FDA-Public Use
  Company Number: US-SA-2017SA147544

PATIENT
  Age: 37 Year
  Sex: Female

DRUGS (5)
  1. ZANTAC [Concomitant]
     Active Substance: RANITIDINE HYDROCHLORIDE
     Indication: DYSPEPSIA
     Dosage: UNK UNK,UNK
     Route: 065
     Dates: start: 20170731, end: 20170807
  2. VITAMIN D2 [Concomitant]
     Active Substance: ERGOCALCIFEROL
     Dosage: 1.25 MG,BIW
     Route: 065
     Dates: start: 201408
  3. ACICLOVIR [Concomitant]
     Active Substance: ACYCLOVIR
     Dosage: 800 MG,QD
     Route: 065
     Dates: start: 201707
  4. ALEMTUZUMAB [Suspect]
     Active Substance: ALEMTUZUMAB
     Indication: MULTIPLE SCLEROSIS
     Dosage: 12 MG,QD
     Route: 041
     Dates: start: 20170731, end: 20170802
  5. ALEMTUZUMAB [Suspect]
     Active Substance: ALEMTUZUMAB
     Dosage: 12 MG, QD
     Route: 041
     Dates: start: 20160725, end: 20160729

REACTIONS (22)
  - White blood cell count decreased [Unknown]
  - Autoimmune hypothyroidism [Unknown]
  - Thyroid disorder [Not Recovered/Not Resolved]
  - Bacterial test positive [Unknown]
  - Pyrexia [Unknown]
  - Urine analysis abnormal [Unknown]
  - Pneumonia [Unknown]
  - White blood cell count abnormal [Unknown]
  - CD4 lymphocytes decreased [Unknown]
  - Anaemia [Not Recovered/Not Resolved]
  - Urine leukocyte esterase positive [Unknown]
  - Angioedema [Recovered/Resolved]
  - Mean cell haemoglobin decreased [Unknown]
  - Urticaria [Recovered/Resolved]
  - Haematocrit decreased [Unknown]
  - Haemoglobin decreased [Unknown]
  - Neutrophil count decreased [Unknown]
  - Immune thrombocytopenic purpura [Unknown]
  - Pachymeningitis [Unknown]
  - Heart rate increased [Not Recovered/Not Resolved]
  - Respiratory tract infection fungal [Unknown]
  - White blood cells urine positive [Unknown]

NARRATIVE: CASE EVENT DATE: 20170807
